FAERS Safety Report 15109298 (Version 2)
Quarter: 2018Q3

REPORT INFORMATION
  Report Type: Spontaneous
  Country: DE (occurrence: DE)
  Receive Date: 20180705
  Receipt Date: 20180710
  Transmission Date: 20181010
  Serious: Yes (Other)
  Sender: FDA-Public Use
  Company Number: DE-ASTELLAS-2018US029696

PATIENT
  Sex: Male

DRUGS (2)
  1. BETMIGA [Suspect]
     Active Substance: MIRABEGRON
     Indication: PRODUCT USED FOR UNKNOWN INDICATION
     Route: 065
  2. BETMIGA [Suspect]
     Active Substance: MIRABEGRON
     Route: 065

REACTIONS (6)
  - Micturition urgency [Unknown]
  - Eyelid infection [Unknown]
  - Headache [Recovered/Resolved]
  - Bladder trabeculation [Unknown]
  - Eyelid oedema [Recovered/Resolved]
  - Dysuria [Unknown]
